FAERS Safety Report 6118101-9 (Version None)
Quarter: 2009Q1

REPORT INFORMATION
  Report Type: 
  Country: None (occurrence: None)
  Receive Date: 20090314
  Receipt Date: 20090210
  Transmission Date: 20090719
  Serious: No
  Sender: FDA-Public Use
  Company Number: US-ABBOTT-09P-163-0502762-00

PATIENT
  Sex: Male
  Weight: 72.64 kg

DRUGS (4)
  1. HUMIRA [Suspect]
     Indication: RHEUMATOID ARTHRITIS
     Dates: start: 20090209
  2. TOPROL-XL [Suspect]
     Indication: HYPERTENSION
     Dates: start: 20070101, end: 20070901
  3. TOPROL-XL [Suspect]
     Dosage: HOLD IF SBP {130
  4. CIALIS [Suspect]
     Indication: ERECTILE DYSFUNCTION
     Dates: start: 20080101

REACTIONS (4)
  - HYPERHIDROSIS [None]
  - HYPOTENSION [None]
  - PALLOR [None]
  - SYNCOPE [None]
